FAERS Safety Report 6079988-1 (Version None)
Quarter: 2009Q1

REPORT INFORMATION
  Report Type: 
  Country: None (occurrence: None)
  Receive Date: 20090217
  Receipt Date: 20081202
  Transmission Date: 20090719
  Serious: No
  Sender: FDA-Public Use
  Company Number: A0758728A

PATIENT
  Age: 56 Year
  Sex: Female

DRUGS (10)
  1. COREG CR [Suspect]
     Dosage: 40MG PER DAY
     Route: 048
  2. MAGNESIUM SULFATE [Concomitant]
  3. LANOXIN [Concomitant]
  4. LISINOPRIL [Concomitant]
  5. SPIRONOLACTONE [Concomitant]
  6. SERTRALINE [Concomitant]
  7. POTASSIUM CHLORIDE [Concomitant]
  8. NEXIUM [Concomitant]
  9. MULTIPLE VITAMIN [Concomitant]
  10. CALTRATE [Concomitant]

REACTIONS (2)
  - ABDOMINAL PAIN UPPER [None]
  - CHEST PAIN [None]
